FAERS Safety Report 25341387 (Version 1)
Quarter: 2025Q2

REPORT INFORMATION
  Report Type: Spontaneous
  Country: US (occurrence: US)
  Receive Date: 20250521
  Receipt Date: 20250521
  Transmission Date: 20250716
  Serious: Yes (Hospitalization)
  Sender: MYLAN
  Company Number: US-MYLANLABS-2025M1041635

PATIENT
  Age: 56 Year
  Sex: Female

DRUGS (2)
  1. METHIMAZOLE [Suspect]
     Active Substance: METHIMAZOLE
     Indication: Thyrotoxic crisis
     Dosage: 10 MILLIGRAM, BID
  2. ATENOLOL [Suspect]
     Active Substance: ATENOLOL
     Indication: Thyrotoxic crisis
     Dosage: 50 MILLIGRAM, QD

REACTIONS (2)
  - Parotitis [Recovered/Resolved]
  - Treatment noncompliance [Unknown]
